FAERS Safety Report 8903522 (Version 2)
Quarter: 2012Q4

REPORT INFORMATION
  Report Type: Report from Study
  Country: JP (occurrence: JP)
  Receive Date: 20121113
  Receipt Date: 20121218
  Transmission Date: 20130627
  Serious: Yes (Death, Hospitalization, Other)
  Sender: FDA-Public Use
  Company Number: JP-ASTELLAS-2012US011047

PATIENT
  Age: 66 Year
  Sex: Male
  Weight: 53 kg

DRUGS (14)
  1. ERLOTINIB TABLET [Suspect]
     Indication: PANCREATIC CARCINOMA
     Dosage: 100 mg, UID/QD
     Route: 048
     Dates: start: 20120517, end: 20120613
  2. LOXOPROFEN SODIUM [Suspect]
     Indication: PANCREATIC CARCINOMA
     Dosage: 180 mg, UID/QD
     Route: 048
     Dates: start: 20120511, end: 20120614
  3. GEMCITABINE                        /01215702/ [Suspect]
     Indication: PANCREATIC CARCINOMA
     Dosage: 1000 mg/m2, UID/QD
     Route: 041
     Dates: start: 20120517, end: 20120517
  4. GEMCITABINE                        /01215702/ [Suspect]
     Dosage: 1000 mg/m2, UID/QD
     Route: 041
     Dates: start: 20120524, end: 20120524
  5. GEMCITABINE                        /01215702/ [Suspect]
     Dosage: 1000 mg/m2, UID/QD
     Route: 041
     Dates: start: 20120607, end: 20120607
  6. ADOAIR [Concomitant]
     Indication: PRODUCT USED FOR UNKNOWN INDICATION
     Dosage: 250 DF, UID/QD
     Route: 055
  7. KIPRES [Concomitant]
     Indication: PRODUCT USED FOR UNKNOWN INDICATION
     Dosage: 10 mg, qod
     Route: 048
     Dates: end: 20120614
  8. AVAPRO [Concomitant]
     Indication: PRODUCT USED FOR UNKNOWN INDICATION
     Dosage: 50 mg, UID/QD
     Route: 048
     Dates: end: 20120716
  9. NOVAMIN                            /00391002/ [Concomitant]
     Indication: PRODUCT USED FOR UNKNOWN INDICATION
     Dosage: 15 mg, UID/QD
     Route: 048
     Dates: end: 20120716
  10. OXYCONTIN [Concomitant]
     Indication: PRODUCT USED FOR UNKNOWN INDICATION
     Dosage: 10 mg, UID/QD
     Route: 048
     Dates: end: 20120716
  11. OXYCODONE [Concomitant]
     Indication: PRODUCT USED FOR UNKNOWN INDICATION
     Dosage: UNK
     Route: 048
     Dates: end: 20120807
  12. MAGMITT [Concomitant]
     Indication: PRODUCT USED FOR UNKNOWN INDICATION
     Dosage: 1980 mg, UID/QD
     Route: 048
     Dates: end: 20120716
  13. PURSENNID /00142207/ [Concomitant]
     Indication: CONSTIPATION
     Dosage: 1 DF, prn
     Route: 048
     Dates: end: 20120716
  14. MUCOSTA [Concomitant]
     Indication: PROPHYLAXIS
     Dosage: 300 mg, UID/QD
     Route: 048
     Dates: end: 20120620

REACTIONS (9)
  - Platelet count decreased [Recovered/Resolved]
  - Pancreatic carcinoma [Fatal]
  - Gastric ulcer haemorrhage [Recovered/Resolved]
  - Malignant neoplasm progression [Unknown]
  - Dysgeusia [Recovered/Resolved]
  - Anaemia [Unknown]
  - Rash [Recovered/Resolved]
  - Dermatitis acneiform [Recovered/Resolved]
  - Decreased appetite [Recovered/Resolved]
